FAERS Safety Report 4816038-6 (Version None)
Quarter: 2005Q4

REPORT INFORMATION
  Report Type: 
  Country: None (occurrence: None)
  Receive Date: 20051026
  Receipt Date: 20051012
  Transmission Date: 20060501
  Serious: Yes (Disabling)
  Sender: FDA-Public Use
  Company Number: 2005EN000357

PATIENT
  Age: 6 Year
  Sex: Female
  Weight: 26 kg

DRUGS (4)
  1. ONCASPAR [Suspect]
     Indication: LEUKAEMIA
     Dosage: 220 IU;X1; IM
     Route: 030
     Dates: start: 20050715
  2. VINCRISTINE [Concomitant]
  3. DECADRON [Concomitant]
  4. ARA-C [Concomitant]

REACTIONS (8)
  - AGNOSIA [None]
  - CORTICAL LAMINAR NECROSIS [None]
  - DYSPHASIA [None]
  - EDUCATIONAL PROBLEM [None]
  - ENCEPHALOMALACIA [None]
  - MEMORY IMPAIRMENT [None]
  - READING DISORDER [None]
  - SOMNOLENCE [None]
